FAERS Safety Report 20222501 (Version 2)
Quarter: 2022Q1

REPORT INFORMATION
  Report Type: Spontaneous
  Country: US (occurrence: US)
  Receive Date: 20211223
  Receipt Date: 20220113
  Transmission Date: 20220424
  Serious: Yes (Hospitalization)
  Sender: FDA-Public Use
  Company Number: US-TEVA-2021-US-1989718

PATIENT
  Age: 77 Year
  Sex: Male

DRUGS (2)
  1. MORPHINE [Suspect]
     Active Substance: MORPHINE
     Indication: Analgesic therapy
     Route: 065
  2. MEPERIDINE [Suspect]
     Active Substance: MEPERIDINE
     Indication: Analgesic therapy
     Route: 065

REACTIONS (1)
  - Sphincter of Oddi dysfunction [Unknown]
